FAERS Safety Report 9176410 (Version 3)
Quarter: 2013Q2

REPORT INFORMATION
  Report Type: Spontaneous
  Country: US (occurrence: US)
  Receive Date: 20130321
  Receipt Date: 20130425
  Transmission Date: 20140414
  Serious: Yes (Other)
  Sender: FDA-Public Use
  Company Number: US-AMGEN-USASP2013016961

PATIENT
  Age: 87 Year
  Sex: Female

DRUGS (9)
  1. PROLIA [Suspect]
     Indication: OSTEOPOROSIS POSTMENOPAUSAL
     Dosage: 60 MG, Q6MO
     Route: 042
     Dates: start: 2011, end: 201210
  2. NEXIUM                             /01479302/ [Concomitant]
     Indication: GASTROOESOPHAGEAL REFLUX DISEASE
     Dosage: 40 UNK, QD
     Route: 048
  3. AGGRENOX [Concomitant]
     Indication: CEREBROVASCULAR ACCIDENT
     Dosage: 25 UNK, BID
     Route: 048
  4. PAXIL                              /00500401/ [Concomitant]
  5. LASIX                              /00032601/ [Concomitant]
     Indication: CARDIAC FAILURE CONGESTIVE
     Dosage: 20 MG, QOD
     Route: 048
  6. ALDACTONE                          /00006201/ [Concomitant]
     Indication: CARDIAC FAILURE CONGESTIVE
     Dosage: 25 UNK, QD
     Route: 048
  7. COREG [Concomitant]
     Indication: CARDIOMYOPATHY
     Dosage: 12.5 UNK, QD
     Route: 048
  8. ATIVAN [Concomitant]
  9. DIOVAN [Concomitant]

REACTIONS (4)
  - Oral infection [Recovering/Resolving]
  - Osteonecrosis of jaw [Not Recovered/Not Resolved]
  - Osteomyelitis [Unknown]
  - Tooth disorder [Unknown]
